FAERS Safety Report 5408379-9 (Version None)
Quarter: 2007Q3

REPORT INFORMATION
  Report Type: 
  Country: None (occurrence: None)
  Receive Date: 20070806
  Receipt Date: 20070806
  Transmission Date: 20080115
  Serious: Yes (Life-Threatening, Hospitalization)
  Sender: FDA-Public Use
  Company Number: None

PATIENT
  Sex: Male
  Weight: 96 kg

DRUGS (4)
  1. BEVACIZUMAB Q 3 WEEKS [Suspect]
     Indication: OESOPHAGEAL CANCER METASTATIC
     Dosage: 10MG/M2 IV BOLUS
     Route: 040
     Dates: start: 20070606, end: 20070718
  2. DOCETAXEL D1, D8 OF 21D CYCLE [Suspect]
     Indication: OESOPHAGEAL CANCER METASTATIC
     Dosage: 30MG/M2 IV BOLUS
     Route: 040
     Dates: start: 20070606, end: 20070725
  3. CISPLATIN [Suspect]
     Indication: OESOPHAGEAL CANCER METASTATIC
     Dosage: 25MG/M2 IV BOLUS
     Route: 040
     Dates: start: 20070606, end: 20070725
  4. IRINOTECAN HCL [Suspect]
     Indication: OESOPHAGEAL CANCER METASTATIC
     Dosage: 50MG/M2 IV BOLUS
     Route: 040
     Dates: start: 20070606, end: 20070725

REACTIONS (4)
  - CAROTID ARTERY THROMBOSIS [None]
  - CEREBRAL INFARCTION [None]
  - EYE PAIN [None]
  - FACIAL PALSY [None]
